FAERS Safety Report 5299862-8 (Version None)
Quarter: 2007Q2

REPORT INFORMATION
  Report Type: 
  Country: None (occurrence: None)
  Receive Date: 20070417
  Receipt Date: 20070405
  Transmission Date: 20071010
  Serious: Yes (Other)
  Sender: FDA-Public Use
  Company Number: US-PFIZER INC-2007028248

PATIENT
  Sex: Female
  Weight: 61.2 kg

DRUGS (2)
  1. CHANTIX [Suspect]
     Indication: SMOKING CESSATION THERAPY
  2. ANTICOAGULANTS [Concomitant]

REACTIONS (4)
  - BREAST PAIN [None]
  - HAEMOPTYSIS [None]
  - MALAISE [None]
  - NAUSEA [None]
